FAERS Safety Report 4509557-3 (Version None)
Quarter: 2004Q4

REPORT INFORMATION
  Report Type: 
  Country: None (occurrence: None)
  Receive Date: 20041119
  Receipt Date: 20041109
  Transmission Date: 20050328
  Serious: Yes (Other)
  Sender: FDA-Public Use
  Company Number: 200415426BCC

PATIENT
  Age: 55 Year
  Sex: Male
  Weight: 102.0593 kg

DRUGS (3)
  1. ALEVE [Suspect]
     Indication: PAIN
     Dosage: 220-440 MG, QD, ORAL
     Route: 048
     Dates: start: 20041001
  2. MORPHINE [Concomitant]
  3. WARFARIN SODIUM [Concomitant]

REACTIONS (1)
  - INTERNATIONAL NORMALISED RATIO INCREASED [None]
